FAERS Safety Report 13450224 (Version 1)
Quarter: 2017Q2

REPORT INFORMATION
  Report Type: Spontaneous
  Country: EG (occurrence: EG)
  Receive Date: 20170417
  Receipt Date: 20170417
  Transmission Date: 20170830
  Serious: Yes (Death)
  Sender: FDA-Public Use
  Company Number: EG-BIOMARINAP-EG-2017-113668

PATIENT
  Age: 4 Year
  Sex: Male
  Weight: 12 kg

DRUGS (1)
  1. ALDURAZYME [Suspect]
     Active Substance: LARONIDASE
     Indication: MUCOPOLYSACCHARIDOSIS I
     Dosage: UNK UNK, QW
     Route: 042
     Dates: start: 20170220, end: 20170306

REACTIONS (3)
  - Cough [Unknown]
  - Seizure [Fatal]
  - Vomiting [Unknown]

NARRATIVE: CASE EVENT DATE: 20170312
